FAERS Safety Report 7485488-4 (Version None)
Quarter: 2011Q2

REPORT INFORMATION
  Report Type: 
  Country: None (occurrence: None)
  Receive Date: 20110517
  Receipt Date: 20110504
  Transmission Date: 20111010
  Serious: Yes (Other)
  Sender: FDA-Public Use
  Company Number: US-ACTELION-A-NJ2011-47348

PATIENT

DRUGS (14)
  1. TRACLEER [Suspect]
     Indication: PULMONARY ARTERIAL HYPERTENSION
     Dosage: 125 MG, BID
     Route: 048
     Dates: start: 20090501, end: 20110211
  2. LOPERAMIDE [Concomitant]
  3. AMBIEN [Concomitant]
  4. K-DUR [Concomitant]
  5. FUROSEMIDE [Concomitant]
  6. ASPIRIN [Concomitant]
  7. TRACLEER [Suspect]
     Dosage: 62.5 MG, BID
     Route: 048
     Dates: start: 20090401, end: 20090501
  8. ACETAMINOPHEN [Concomitant]
  9. ZOFRAN [Concomitant]
  10. SYNTHROID [Concomitant]
  11. PLAQUENIL [Concomitant]
  12. VITAMIN D [Concomitant]
  13. PROZAC [Concomitant]
  14. LIPITOR [Concomitant]

REACTIONS (7)
  - ASPARTATE AMINOTRANSFERASE INCREASED [None]
  - BLOOD BILIRUBIN INCREASED [None]
  - BLOOD ALKALINE PHOSPHATASE INCREASED [None]
  - MUSCULOSKELETAL PAIN [None]
  - PULMONARY HYPERTENSION [None]
  - RIGHT VENTRICULAR FAILURE [None]
  - HEPATIC ENZYME INCREASED [None]
